FAERS Safety Report 10770265 (Version 1)
Quarter: 2015Q1

REPORT INFORMATION
  Report Type: Spontaneous
  Country: US (occurrence: US)
  Receive Date: 20150206
  Receipt Date: 20150206
  Transmission Date: 20150721
  Serious: Yes (Hospitalization)
  Sender: FDA-Public Use
  Company Number: US-RECKITT BENCKISER PHARMACEUTICAL, INC-RB-71964-2014

PATIENT
  Age: 0 Year
  Sex: Male
  Weight: 3.45 kg

DRUGS (8)
  1. NICOTINE. [Suspect]
     Active Substance: NICOTINE
     Indication: PRODUCT USED FOR UNKNOWN INDICATION
     Dosage: 15 CIGARETTES DAILY
     Route: 064
     Dates: start: 20131105, end: 20140324
  2. SUBUTEX [Suspect]
     Active Substance: BUPRENORPHINE HYDROCHLORIDE
     Indication: DRUG DEPENDENCE
     Dosage: 2 TO 2 AND HALF TABLET PER DAY (16-20 MG)
     Route: 064
     Dates: start: 20140130, end: 2014
  3. WELLBUTRIN [Suspect]
     Active Substance: BUPROPION HYDROCHLORIDE
     Indication: SMOKING CESSATION THERAPY
     Dosage: 100 MG, DAILY
     Route: 064
     Dates: start: 20140320
  4. BUPRENORPHINE GENERIC TAB [Suspect]
     Active Substance: BUPRENORPHINE
     Indication: DRUG DEPENDENCE
     Dosage: 20 MG, 2 AND A HALF TABLETS, QD
     Route: 064
     Dates: start: 20140130, end: 2014
  5. BUPRENORPHINE GENERIC TAB [Suspect]
     Active Substance: BUPRENORPHINE
     Dosage: 20 MG, 2 AND A HALF TABLETS, QD
     Route: 063
     Dates: start: 20140823
  6. NICOTINE TRANSDERMAL SYSTEM [Suspect]
     Active Substance: NICOTINE
     Indication: SMOKING CESSATION THERAPY
     Dosage: 14 MG, DAILY
     Route: 064
     Dates: start: 20140320
  7. SUBOXONE [Suspect]
     Active Substance: BUPRENORPHINE HYDROCHLORIDE\NALOXONE HYDROCHLORIDE
     Indication: DRUG DEPENDENCE
     Dosage: APPROXIMATELY 24 MG DAILY
     Route: 064
     Dates: start: 20131105, end: 20140130
  8. SUBUTEX [Suspect]
     Active Substance: BUPRENORPHINE HYDROCHLORIDE
     Dosage: 2 TO 2 AND HALF TABLET PER DAY (16-20 MG)
     Route: 063
     Dates: start: 2014

REACTIONS (3)
  - Exposure during breast feeding [Not Recovered/Not Resolved]
  - Jaundice neonatal [Recovered/Resolved]
  - Foetal exposure during pregnancy [Recovered/Resolved]

NARRATIVE: CASE EVENT DATE: 20131105
